FAERS Safety Report 5387549-2 (Version None)
Quarter: 2007Q3

REPORT INFORMATION
  Report Type: 
  Country: None (occurrence: None)
  Receive Date: 20070711
  Receipt Date: 20070711
  Transmission Date: 20080115
  Serious: Yes (Hospitalization)
  Sender: FDA-Public Use
  Company Number: None

PATIENT
  Age: 76 Year
  Sex: Male
  Weight: 106.3 kg

DRUGS (2)
  1. OXANDROLONE [Suspect]
     Indication: UNEVALUABLE EVENT
     Dosage: 2 BID,2 BID, ORAL
     Route: 048
     Dates: start: 20070326, end: 20070412
  2. SIMVASTATIN [Concomitant]

REACTIONS (1)
  - HEPATIC ENZYME ABNORMAL [None]
